FAERS Safety Report 16151785 (Version 3)
Quarter: 2019Q2

REPORT INFORMATION
  Report Type: Report from Study
  Country: US (occurrence: US)
  Receive Date: 20190403
  Receipt Date: 20190531
  Transmission Date: 20190711
  Serious: Yes (Other)
  Sender: FDA-Public Use
  Company Number: US-ALEXION PHARMACEUTICALS INC.-A201904724

PATIENT
  Age: 66 Year
  Sex: Male

DRUGS (1)
  1. STRENSIQ [Suspect]
     Active Substance: ASFOTASE ALFA
     Indication: HYPOPHOSPHATASIA
     Dosage: UNK
     Route: 065

REACTIONS (8)
  - Systemic lupus erythematosus [Unknown]
  - Pain in extremity [Recovered/Resolved]
  - Nephrolithiasis [Unknown]
  - Blood urine present [Unknown]
  - Groin pain [Unknown]
  - Peripheral swelling [Unknown]
  - Fatigue [Unknown]
  - Malaise [Unknown]

NARRATIVE: CASE EVENT DATE: 20190323
